FAERS Safety Report 8246819-0 (Version None)
Quarter: 2012Q1

REPORT INFORMATION
  Report Type: 
  Country: None (occurrence: None)
  Receive Date: 20120320
  Receipt Date: 20120305
  Transmission Date: 20120608
  Serious: Yes (Hospitalization)
  Sender: FDA-Public Use
  Company Number: GAM-024-12-DE

PATIENT
  Age: 40 Year
  Sex: Male

DRUGS (9)
  1. FLUCONAZOLE [Concomitant]
  2. VANCOMYCIN [Concomitant]
  3. PREDNISOLONE [Suspect]
     Indication: DIARRHOEA
     Dosage: 50 MG - 1 X 1/D ORAL
     Route: 048
     Dates: start: 20110813, end: 20110923
  4. SULFAMETHOXAZOLE AND TRIMETHOPRIM [Concomitant]
  5. LEVOFLOXACIN [Concomitant]
  6. MESALAMINE [Concomitant]
  7. OCTAGAM [Suspect]
     Indication: INFECTION
     Dosage: 10 G - 1 X 1/D INTRAVENOUS (NOT OTHERWISE SPECIFIED)
     Route: 042
     Dates: start: 20110723, end: 20110813
  8. OMEPRAZOLE [Concomitant]
  9. ,,, [Concomitant]

REACTIONS (9)
  - DIARRHOEA [None]
  - NASOPHARYNGITIS [None]
  - TOE AMPUTATION [None]
  - INFECTION [None]
  - ARTERIAL THROMBOSIS LIMB [None]
  - PYREXIA [None]
  - COLITIS ULCERATIVE [None]
  - PAIN IN EXTREMITY [None]
  - HYPERHOMOCYSTEINAEMIA [None]
